FAERS Safety Report 5885602-8 (Version None)
Quarter: 2008Q3

REPORT INFORMATION
  Report Type: 
  Country: None (occurrence: None)
  Receive Date: 20080916
  Receipt Date: 20080908
  Transmission Date: 20090109
  Serious: Yes (Other)
  Sender: FDA-Public Use
  Company Number: ES-GILEAD-2008-0017224

PATIENT
  Age: 51 Year
  Sex: Male

DRUGS (7)
  1. TRUVADA [Suspect]
     Indication: HIV INFECTION
     Route: 048
     Dates: start: 20060601
  2. PIPERACILLIN AND TAZOBACTAM [Suspect]
     Indication: CANDIDIASIS
     Dates: start: 20060601
  3. PIPERACILLIN AND TAZOBACTAM [Suspect]
     Indication: SEPSIS
  4. FLUCONAZOLE [Suspect]
     Indication: CANDIDIASIS
  5. FLUCONAZOLE [Suspect]
     Indication: SEPSIS
  6. RITONAVIR [Concomitant]
     Indication: HIV INFECTION
     Dates: start: 20060601
  7. FOSAMPRENAVIR [Concomitant]
     Indication: HIV INFECTION
     Dates: start: 20060601

REACTIONS (16)
  - ABDOMINAL PAIN [None]
  - BACTERIAL ANTIGEN POSITIVE [None]
  - BLOOD PRESSURE DECREASED [None]
  - CACHEXIA [None]
  - CANDIDIASIS [None]
  - COMPUTERISED TOMOGRAM THORAX ABNORMAL [None]
  - CULTURE STOOL POSITIVE [None]
  - ELECTROCARDIOGRAM QT PROLONGED [None]
  - ELECTROCARDIOGRAM T WAVE AMPLITUDE DECREASED [None]
  - HYPOKALAEMIA [None]
  - PANCYTOPENIA [None]
  - PULMONARY BULLA [None]
  - PYREXIA [None]
  - RHONCHI [None]
  - SEPSIS [None]
  - WEIGHT DECREASED [None]
